FAERS Safety Report 13114800 (Version 3)
Quarter: 2017Q2

REPORT INFORMATION
  Report Type: Report from Study
  Country: CA (occurrence: CA)
  Receive Date: 20170113
  Receipt Date: 20170424
  Transmission Date: 20170830
  Serious: Yes (Other)
  Sender: FDA-Public Use
  Company Number: CA-JNJFOC-20170111431

PATIENT
  Sex: Female
  Weight: 60.4 kg

DRUGS (1)
  1. REMICADE [Suspect]
     Active Substance: INFLIXIMAB
     Indication: RHEUMATOID ARTHRITIS
     Dosage: ALSO REPORTED AS 3 MG/KG
     Route: 042
     Dates: start: 20130905

REACTIONS (1)
  - Skin cancer [Recovering/Resolving]
